FAERS Safety Report 5740824-1 (Version None)
Quarter: 2008Q2

REPORT INFORMATION
  Report Type: 
  Country: None (occurrence: None)
  Receive Date: 20080516
  Receipt Date: 20080505
  Transmission Date: 20081010
  Serious: Yes (Other)
  Sender: FDA-Public Use
  Company Number: FR-ELI_LILLY_AND_COMPANY-FR200805002048

PATIENT
  Age: 65 Year
  Sex: Male

DRUGS (2)
  1. CYMBALTA [Suspect]
     Dosage: 60 MG, UNKNOWN
     Route: 048
  2. BROMAZEPAM [Concomitant]
     Indication: ANXIOLYTIC THERAPY
     Dosage: 6 MG, UNKNOWN
     Route: 048

REACTIONS (1)
  - TRANSAMINASES INCREASED [None]
